FAERS Safety Report 7386094-2 (Version None)
Quarter: 2011Q1

REPORT INFORMATION
  Report Type: 
  Country: None (occurrence: None)
  Receive Date: 20110314
  Receipt Date: 20110228
  Transmission Date: 20110831
  Serious: Yes (Death, Hospitalization, Other)
  Sender: FDA-Public Use
  Company Number: 2010PROUSA00062

PATIENT
  Age: 78 Year
  Sex: Male

DRUGS (9)
  1. PLAVIX [Concomitant]
  2. MEGACE [Concomitant]
  3. CALCIUM [Concomitant]
  4. GLIPIZIDE [Concomitant]
  5. PROVENGE [Suspect]
     Indication: PROSTATE CANCER METASTATIC
     Dosage: 250 ML, SINGLE, INTRAVENOUS
     Route: 042
     Dates: start: 20100916, end: 20100916
  6. ASPIRIN [Concomitant]
  7. ALLOPURINOL [Concomitant]
  8. LEXAPRO [Concomitant]
  9. VITAMIN D [Concomitant]

REACTIONS (13)
  - PROSTATE CANCER METASTATIC [None]
  - BLOOD CREATINE INCREASED [None]
  - TRICUSPID VALVE INCOMPETENCE [None]
  - ANAEMIA [None]
  - FALL [None]
  - LEFT VENTRICULAR HYPERTROPHY [None]
  - WHITE BLOOD CELL COUNT DECREASED [None]
  - BLOOD UREA INCREASED [None]
  - HYPONATRAEMIA [None]
  - BLOOD GLUCOSE INCREASED [None]
  - FEMORAL NECK FRACTURE [None]
  - DEHYDRATION [None]
  - CAROTID ARTERIOSCLEROSIS [None]
